FAERS Safety Report 6443072-5 (Version None)
Quarter: 2009Q4

REPORT INFORMATION
  Report Type: 
  Country: None (occurrence: None)
  Receive Date: 20091117
  Receipt Date: 20091104
  Transmission Date: 20100525
  Serious: Yes (Hospitalization, Other)
  Sender: FDA-Public Use
  Company Number: US-ALEXION-A200900874

PATIENT
  Sex: Female

DRUGS (8)
  1. SOLIRIS [Suspect]
     Indication: PAROXYSMAL NOCTURNAL HAEMOGLOBINURIA
     Dosage: 600 MG QW
     Route: 042
     Dates: start: 20080916, end: 20080101
  2. SOLIRIS [Suspect]
     Dosage: 900 MG Q2W
     Route: 042
     Dates: start: 20081007, end: 20091021
  3. PROCRIT                            /00909301/ [Concomitant]
     Dosage: UNK
  4. LORAZEPAM [Concomitant]
     Dosage: UNK
     Route: 048
  5. FIORICET [Concomitant]
     Indication: HEADACHE
     Dosage: UNK
     Route: 048
  6. FOLIC ACID [Concomitant]
     Dosage: UNK
     Route: 048
  7. METFORMIN HCL [Concomitant]
     Dosage: UNK
     Route: 048
  8. DACOGEN [Concomitant]
     Dosage: UNK

REACTIONS (8)
  - CHILLS [None]
  - DECREASED APPETITE [None]
  - HEADACHE [None]
  - LEUKAEMIA [None]
  - MYELODYSPLASTIC SYNDROME [None]
  - PYREXIA [None]
  - TRANSFUSION REACTION [None]
  - WEIGHT DECREASED [None]
